FAERS Safety Report 10512072 (Version 2)
Quarter: 2015Q1

REPORT INFORMATION
  Report Type: Spontaneous
  Country: DK (occurrence: CA)
  Receive Date: 20141010
  Receipt Date: 20150210
  Transmission Date: 20150720
  Serious: Yes (Hospitalization, Other)
  Sender: FDA-Public Use
  Company Number: CA-FRI-1000071385

PATIENT
  Sex: Male

DRUGS (12)
  1. KEPPRA [Concomitant]
     Active Substance: LEVETIRACETAM
     Dosage: DAILY DOSE NOT REPORTED.
  2. ESCITALOPRAM [Suspect]
     Active Substance: ESCITALOPRAM OXALATE
     Indication: ANXIETY
     Dosage: OVERDOSE: UNKNOWN DOSE
     Dates: start: 20140409
  3. CLOBAZAM [Suspect]
     Active Substance: CLOBAZAM
     Indication: PRODUCT USED FOR UNKNOWN INDICATION
     Dosage: (FREQUENCY NOT REPORTED.)
  4. AVASTIN [Suspect]
     Active Substance: BEVACIZUMAB
     Dosage: OVERDOSE: 800 MG
     Route: 042
     Dates: start: 20140324
  5. PANTOPRAZOLE [Concomitant]
     Active Substance: PANTOPRAZOLE SODIUM
     Dosage: DAILY DOSE NOT REPORTED.
  6. ROSUVASTATIN CALCIUM. [Suspect]
     Active Substance: ROSUVASTATIN CALCIUM
     Indication: PRODUCT USED FOR UNKNOWN INDICATION
     Dosage: OVERDOSE: UNKNOWN DOSE
  7. AVODART [Concomitant]
     Active Substance: DUTASTERIDE
  8. AVASTIN [Suspect]
     Active Substance: BEVACIZUMAB
     Indication: GLIOBLASTOMA
     Dosage: OVERDOSE: 680 MG
     Route: 042
     Dates: start: 20140310, end: 20140526
  9. AVASTIN [Suspect]
     Active Substance: BEVACIZUMAB
     Dosage: OVERDOSE: 850 MG
     Route: 042
     Dates: start: 20140414
  10. DOCUSATE [Concomitant]
     Active Substance: DOCUSATE
     Dosage: DAILY DOSE NOT REPORTED.
  11. DEXAMETHASONE. [Concomitant]
     Active Substance: DEXAMETHASONE
     Dosage: DAILY DOSE NOT REPORTED.
  12. TRAZODONE [Suspect]
     Active Substance: TRAZODONE HYDROCHLORIDE
     Indication: PRODUCT USED FOR UNKNOWN INDICATION
     Dosage: OVERDOSE: UNKNOWN DOSE
     Dates: start: 20140409

REACTIONS (13)
  - Oral herpes [Not Recovered/Not Resolved]
  - Dyspnoea [Recovering/Resolving]
  - Accidental overdose [Unknown]
  - Anxiety [Unknown]
  - Abdominal pain [Not Recovered/Not Resolved]
  - Dizziness [Not Recovered/Not Resolved]
  - Malignant neoplasm progression [Not Recovered/Not Resolved]
  - Balance disorder [Not Recovered/Not Resolved]
  - Asthenia [Not Recovered/Not Resolved]
  - Mobility decreased [Not Recovered/Not Resolved]
  - Abasia [Not Recovered/Not Resolved]
  - Genital herpes [Not Recovered/Not Resolved]
  - Faeces soft [Not Recovered/Not Resolved]

NARRATIVE: CASE EVENT DATE: 20140310
